FAERS Safety Report 21778293 (Version 4)
Quarter: 2023Q1

REPORT INFORMATION
  Report Type: Spontaneous
  Country: US (occurrence: US)
  Receive Date: 20221226
  Receipt Date: 20230317
  Transmission Date: 20230418
  Serious: Yes (Hospitalization)
  Sender: FDA-Public Use
  Company Number: US-BIOVITRUM-2022US15454

PATIENT
  Age: 1 Year
  Sex: Male
  Weight: 8.36 kg

DRUGS (22)
  1. SYNAGIS [Suspect]
     Active Substance: PALIVIZUMAB
     Indication: Antiviral prophylaxis
     Dosage: 1 IN 1 MONTH
     Dates: start: 202202
  2. SYNAGIS [Suspect]
     Active Substance: PALIVIZUMAB
     Dates: start: 202212
  3. SYNAGIS [Suspect]
     Active Substance: PALIVIZUMAB
     Dosage: SYNAGIS 100 MG/ML INTRAMUSCULAR SOLUTION ONCE DAILY
     Dates: start: 20221207
  4. SYNAGIS [Suspect]
     Active Substance: PALIVIZUMAB
     Dosage: SYNAGIS 50 MG/0.5 ML INTRAMUSCULAR SOLUTION ONCE DAILY
     Dates: start: 20221207
  5. BUDESONIDE\FORMOTEROL [Concomitant]
     Active Substance: BUDESONIDE\FORMOTEROL
     Indication: Product used for unknown indication
     Dosage: INHALE 2 PUFF(S) TWICE A DAY BY INHALATION ROUTE
     Route: 055
     Dates: start: 20221108
  6. IBUPROFEN [Concomitant]
     Active Substance: IBUPROFEN
     Indication: Product used for unknown indication
  7. MELATONIN [Concomitant]
     Active Substance: MELATONIN
     Indication: Product used for unknown indication
     Dosage: TAKE 1 ML EVERY DAY BY ORAL ROUTE AS NEEDED
     Route: 048
     Dates: start: 20220124
  8. NYSTATIN [Concomitant]
     Active Substance: NYSTATIN
     Indication: Product used for unknown indication
     Dosage: 100,000 UNIT/ML ORAL SUSPENSION. 1 ML IN EACH SIDE OF MOUTH 4 TIMES PER DAY UNTIL WHITE SPOTS GO AWA
     Route: 048
     Dates: start: 20220803
  9. ONDANSETRON HCL [Concomitant]
     Active Substance: ONDANSETRON HYDROCHLORIDE
     Indication: Product used for unknown indication
     Dosage: 4 MG/5 ML ORAL SOLUTION, EVERY 8 HOURS BY ORAL ROUTE AS NEEDED
     Route: 048
     Dates: start: 20221216
  10. DTaP-Hib-IPV [Concomitant]
     Indication: Product used for unknown indication
     Route: 030
     Dates: start: 20221107
  11. DTaP-Hib-IPV [Concomitant]
     Route: 030
     Dates: start: 20220302
  12. DTaP-Hep B-IPV [Concomitant]
     Indication: Product used for unknown indication
     Dosage: THIGH,LEFT
     Route: 030
     Dates: start: 20211220
  13. DTaP-Hep B-IPV [Concomitant]
     Dosage: THIGH,LEFT
     Route: 030
     Dates: start: 20211013
  14. HAEMOPHILUS B CONJUGATE VACCINE NOS [Concomitant]
     Active Substance: HAEMOPHILUS B CONJUGATE VACCINE
     Indication: Product used for unknown indication
     Dates: start: 20211220
  15. HAEMOPHILUS B CONJUGATE VACCINE NOS [Concomitant]
     Active Substance: HAEMOPHILUS B CONJUGATE VACCINE
     Dates: start: 20211013
  16. Hep A [Concomitant]
     Indication: Product used for unknown indication
     Dosage: THIGH RIGHT
     Route: 030
     Dates: start: 20221107
  17. Hep B [Concomitant]
     Indication: Product used for unknown indication
     Dosage: THIGH RIGHT
     Route: 030
     Dates: start: 20220506
  18. INFLUENZA VIRUS VACCINE [Concomitant]
     Active Substance: INFLUENZA VIRUS VACCINE
     Indication: Product used for unknown indication
     Route: 030
     Dates: start: 20221107
  19. MEASLES-MUMPS-RUBELLA VIRUS VACCINE [Concomitant]
     Active Substance: MEASLES-MUMPS-RUBELLA VIRUS VACCINE
     Indication: Product used for unknown indication
     Dosage: THIGH LEFT
     Route: 058
     Dates: start: 20220803
  20. pneumococcal conjugate PCV 13 [Concomitant]
     Indication: Product used for unknown indication
     Route: 030
     Dates: start: 20220803
  21. pneumococcal conjugate PCV 13 [Concomitant]
     Route: 030
     Dates: start: 20220302
  22. varicella [Concomitant]
     Indication: Product used for unknown indication
     Dosage: RIGHT THIGH
     Route: 058
     Dates: start: 20220803

REACTIONS (2)
  - Respiratory syncytial virus infection [Recovering/Resolving]
  - Vomiting [Unknown]

NARRATIVE: CASE EVENT DATE: 20221214
